FAERS Safety Report 5413515-4 (Version None)
Quarter: 2007Q3

REPORT INFORMATION
  Report Type: 
  Country: None (occurrence: None)
  Receive Date: 20070814
  Receipt Date: 20070806
  Transmission Date: 20080115
  Serious: Yes (Hospitalization, Other)
  Sender: FDA-Public Use
  Company Number: US-AVENTIS-200715685US

PATIENT

DRUGS (1)
  1. LOVENOX [Suspect]
     Dosage: DOSE: UNK

REACTIONS (2)
  - HAEMATOMA [None]
  - INFECTION [None]
